FAERS Safety Report 25160926 (Version 1)
Quarter: 2025Q2

REPORT INFORMATION
  Report Type: Spontaneous
  Country: US (occurrence: None)
  Receive Date: 20250403
  Receipt Date: 20250403
  Transmission Date: 20250717
  Serious: No
  Sender: FDA-CTU
  Company Number: None

PATIENT
  Age: 42 Year
  Sex: Female
  Weight: 90 kg

DRUGS (1)
  1. ZEPBOUND [Suspect]
     Active Substance: TIRZEPATIDE
     Indication: Obesity
     Dates: start: 20250402

REACTIONS (3)
  - Neck pain [None]
  - Non-cardiac chest pain [None]
  - Tenderness [None]

NARRATIVE: CASE EVENT DATE: 20250403
